FAERS Safety Report 24250290 (Version 2)
Quarter: 2024Q4

REPORT INFORMATION
  Report Type: Spontaneous
  Country: DE (occurrence: DE)
  Receive Date: 20240826
  Receipt Date: 20241121
  Transmission Date: 20250115
  Serious: Yes (Life-Threatening)
  Sender: NOVARTIS
  Company Number: DE-002147023-NVSC2024DE171174

PATIENT
  Age: 28 Year
  Sex: Female
  Weight: 45 kg

DRUGS (1)
  1. KESIMPTA [Suspect]
     Active Substance: OFATUMUMAB
     Indication: Multiple sclerosis
     Dosage: 20 MG, QMO
     Route: 058
     Dates: start: 202403

REACTIONS (11)
  - Diarrhoea [Recovering/Resolving]
  - Meningitis viral [Recovering/Resolving]
  - Depressed level of consciousness [Recovering/Resolving]
  - Atypical pneumonia [Recovering/Resolving]
  - Multiple sclerosis relapse [Recovering/Resolving]
  - Quadriplegia [Recovering/Resolving]
  - Pleocytosis [Recovering/Resolving]
  - Blood brain barrier defect [Recovering/Resolving]
  - Cerebrospinal fluid leakage [Recovering/Resolving]
  - Pyrexia [Recovering/Resolving]
  - Pyrexia [Recovered/Resolved]

NARRATIVE: CASE EVENT DATE: 20240301
